FAERS Safety Report 9056558 (Version 1)
Quarter: 2013Q1

REPORT INFORMATION
  Report Type: Spontaneous
  Country: ES (occurrence: ES)
  Receive Date: 20130204
  Receipt Date: 20130204
  Transmission Date: 20140127
  Serious: Yes (Hospitalization)
  Sender: FDA-Public Use
  Company Number: ES-GLAXOSMITHKLINE-B0864329A

PATIENT
  Age: 72 Year
  Sex: Male

DRUGS (1)
  1. REVOLADE [Suspect]
     Indication: AUTOIMMUNE THROMBOCYTOPENIA
     Route: 048
     Dates: start: 20120618, end: 20121017

REACTIONS (4)
  - Renal failure [Recovered/Resolved]
  - Dyspnoea at rest [Recovered/Resolved]
  - Oedema [Recovered/Resolved]
  - Orthopnoea [Recovered/Resolved]
